FAERS Safety Report 22360525 (Version 1)
Quarter: 2023Q2

REPORT INFORMATION
  Report Type: Spontaneous
  Country: CN (occurrence: CN)
  Receive Date: 20230524
  Receipt Date: 20230524
  Transmission Date: 20230722
  Serious: Yes (Other)
  Sender: FDA-Public Use
  Company Number: CN-PFIZER INC-PV202300089712

PATIENT

DRUGS (1)
  1. SIROLIMUS [Suspect]
     Active Substance: SIROLIMUS
     Indication: Therapeutic procedure
     Dosage: 1.0 MG/M2
     Route: 048

REACTIONS (3)
  - Liver injury [Unknown]
  - Aspartate aminotransferase increased [Unknown]
  - Off label use [Unknown]
